FAERS Safety Report 24638243 (Version 1)
Quarter: 2024Q4

REPORT INFORMATION
  Report Type: Spontaneous
  Country: US (occurrence: US)
  Receive Date: 20241119
  Receipt Date: 20241119
  Transmission Date: 20250115
  Serious: Yes (Other)
  Sender: PFIZER
  Company Number: US-PFIZER INC-202400301195

PATIENT
  Age: 63 Year
  Sex: Male
  Weight: 81.19 kg

DRUGS (2)
  1. PAXLOVID [Suspect]
     Active Substance: NIRMATRELVIR\RITONAVIR
     Indication: COVID-19 treatment
     Dosage: 3 PILLS IN THE MORNING AND 3 PILLS IN THE AFTERNOON AND HAD BEEN TAKING THIS MEDICATION FOR 4 DAYS
     Dates: start: 20240924, end: 20240927
  2. METOPROLOL TARTRATE [Concomitant]
     Active Substance: METOPROLOL TARTRATE
     Dosage: 25 MG

REACTIONS (7)
  - Vomiting [Recovering/Resolving]
  - Illness [Recovering/Resolving]
  - Feeling abnormal [Recovering/Resolving]
  - Hypersensitivity [Unknown]
  - Blood sodium decreased [Unknown]
  - Dysgeusia [Unknown]
  - Product taste abnormal [Unknown]
